FAERS Safety Report 9202725 (Version 1)
Quarter: 2013Q2

REPORT INFORMATION
  Report Type: Spontaneous
  Country: HR (occurrence: HR)
  Receive Date: 20130401
  Receipt Date: 20130401
  Transmission Date: 20140414
  Serious: Yes (Other)
  Sender: FDA-Public Use
  Company Number: HR-PFIZER INC-2013099656

PATIENT
  Age: 43 Year
  Sex: Female

DRUGS (1)
  1. SULFASALAZINE [Suspect]
     Dosage: UNK

REACTIONS (7)
  - Blister [Unknown]
  - Feeling hot [Unknown]
  - Disturbance in attention [Unknown]
  - Choking [Unknown]
  - Crying [Unknown]
  - Depression [Unknown]
  - Increased appetite [Unknown]
